FAERS Safety Report 14800149 (Version 5)
Quarter: 2018Q2

REPORT INFORMATION
  Report Type: Report from Study
  Country: None (occurrence: US)
  Receive Date: 20180424
  Receipt Date: 20180612
  Transmission Date: 20180711
  Serious: Yes (Death, Life-Threatening, Hospitalization)
  Sender: FDA-Public Use
  Company Number: US-ABBVIE-18P-163-2329257-00

PATIENT
  Age: 16 Year
  Sex: Male
  Weight: 58.6 kg

DRUGS (81)
  1. VENETOCLAX. [Suspect]
     Active Substance: VENETOCLAX
     Indication: RECURRENT CANCER
     Route: 050
     Dates: start: 20180210, end: 20180210
  2. METHADONE [Concomitant]
     Active Substance: METHADONE HYDROCHLORIDE
     Route: 050
     Dates: start: 20180223, end: 20180226
  3. SIMETHICONE (DIMETHICONE) [Concomitant]
     Active Substance: DIMETHICONE
     Indication: BONE PAIN
  4. FENTANYL. [Concomitant]
     Active Substance: FENTANYL
     Indication: ABDOMINAL PAIN
     Dosage: 50-100MCG
     Route: 042
     Dates: start: 20180216
  5. DRONABINOL. [Concomitant]
     Active Substance: DRONABINOL
     Route: 048
     Dates: start: 20180211, end: 20180305
  6. SODIUM BICARBONATE. [Concomitant]
     Active Substance: SODIUM BICARBONATE
     Indication: ACIDOSIS
     Route: 048
     Dates: start: 20180213, end: 20180213
  7. RASBURICASE [Concomitant]
     Active Substance: RASBURICASE
     Route: 042
     Dates: start: 20180222, end: 20180222
  8. ALBUMIN HUMAN 25% [Concomitant]
     Active Substance: ALBUMIN HUMAN
     Indication: VOLUME BLOOD DECREASED
     Route: 042
     Dates: start: 20180217, end: 20180217
  9. MEXILETINE [Concomitant]
     Active Substance: MEXILETINE
     Indication: HEART RATE IRREGULAR
     Route: 048
     Dates: start: 20180209, end: 20180305
  10. VANCOMYCIN [Concomitant]
     Active Substance: VANCOMYCIN
     Indication: INFECTION PROPHYLAXIS
     Route: 042
     Dates: start: 20180216, end: 20180218
  11. OLANZAPINE. [Concomitant]
     Active Substance: OLANZAPINE
     Route: 048
     Dates: start: 20180305, end: 20180306
  12. NORMAL SALINE SOLUTION (0.9% SODIUM CHLORIDE) [Concomitant]
     Route: 042
     Dates: start: 20180217, end: 20180217
  13. NORMAL SALINE SOLUTION (0.9% SODIUM CHLORIDE) [Concomitant]
     Route: 042
     Dates: start: 20180304, end: 20180304
  14. VENETOCLAX. [Suspect]
     Active Substance: VENETOCLAX
     Indication: REFRACTORY CANCER
     Route: 050
     Dates: start: 20180208, end: 20180209
  15. FUROSEMIDE. [Concomitant]
     Active Substance: FUROSEMIDE
     Indication: OEDEMA
     Route: 042
     Dates: start: 20180218, end: 20180305
  16. METHADONE [Concomitant]
     Active Substance: METHADONE HYDROCHLORIDE
     Indication: NEURALGIA
     Route: 042
     Dates: start: 20180216, end: 20180218
  17. SIMETHICONE (DIMETHICONE) [Concomitant]
     Active Substance: DIMETHICONE
     Indication: ABDOMINAL PAIN
     Route: 048
     Dates: start: 20180209, end: 20180305
  18. ACETAMINOPHEN. [Concomitant]
     Active Substance: ACETAMINOPHEN
     Indication: ARTHRALGIA
  19. SODIUM CHLORIDE NASAL SPRAY 0.65% [Concomitant]
     Indication: NASAL CONGESTION
     Route: 045
     Dates: start: 20180211, end: 20180305
  20. RASBURICASE [Concomitant]
     Active Substance: RASBURICASE
     Route: 042
     Dates: start: 20180304, end: 20180304
  21. ALBUMIN HUMAN 25% [Concomitant]
     Active Substance: ALBUMIN HUMAN
     Route: 042
     Dates: start: 20180303, end: 20180303
  22. ALBUMIN HUMAN 25% [Concomitant]
     Active Substance: ALBUMIN HUMAN
     Route: 042
     Dates: start: 20180228, end: 20180305
  23. ALLOPURINOL. [Concomitant]
     Active Substance: ALLOPURINOL
     Indication: BLOOD URIC ACID INCREASED
     Route: 048
     Dates: start: 20180216, end: 20180217
  24. CEFEPIME [Concomitant]
     Active Substance: CEFEPIME HYDROCHLORIDE
     Indication: ANTIBIOTIC PROPHYLAXIS
     Route: 042
     Dates: start: 20180209, end: 20180218
  25. CLONIDINE. [Concomitant]
     Active Substance: CLONIDINE
     Indication: SEDATIVE THERAPY
     Route: 048
     Dates: start: 20180208, end: 20180227
  26. CLONIDINE. [Concomitant]
     Active Substance: CLONIDINE
     Indication: PAIN
  27. LORAZEPAM. [Concomitant]
     Active Substance: LORAZEPAM
     Indication: ANXIETY
     Route: 042
     Dates: start: 20180209
  28. METHADONE [Concomitant]
     Active Substance: METHADONE HYDROCHLORIDE
     Indication: ABDOMINAL PAIN
     Route: 042
     Dates: start: 20180209, end: 20180223
  29. DOCUSATE [Concomitant]
     Active Substance: DOCUSATE
     Indication: CONSTIPATION
     Route: 048
     Dates: start: 20180210, end: 20180305
  30. PANCRELIPASE. [Concomitant]
     Active Substance: PANCRELIPASE
     Indication: MALABSORPTION
     Route: 048
     Dates: start: 20180213, end: 20180213
  31. MEROPENEM. [Concomitant]
     Active Substance: MEROPENEM
     Indication: INFECTION PROPHYLAXIS
     Route: 042
     Dates: start: 20180218
  32. KETAMINE [Concomitant]
     Active Substance: KETAMINE
     Indication: FLUID REPLACEMENT
     Dosage: IN 50ML NORMAL SALINE
     Route: 042
     Dates: start: 20180224
  33. NORMAL SALINE SOLUTION (0.9% SODIUM CHLORIDE) [Concomitant]
     Indication: PROPHYLAXIS
     Route: 042
     Dates: start: 20180207, end: 20180207
  34. AZACITIDINE. [Suspect]
     Active Substance: AZACITIDINE
     Indication: RECURRENT CANCER
     Dosage: DAYS 1-7 OF EACH CYCLE
     Route: 042
     Dates: start: 20180217, end: 20180223
  35. CELECOXIB. [Concomitant]
     Active Substance: CELECOXIB
     Indication: ABDOMINAL PAIN
     Route: 048
     Dates: start: 20180209, end: 20180305
  36. CELECOXIB. [Concomitant]
     Active Substance: CELECOXIB
     Indication: BONE PAIN
  37. 5% DEXTROSE IN WATER [Concomitant]
     Indication: FLUID REPLACEMENT
     Route: 042
     Dates: start: 20180208, end: 20180305
  38. ERGOCALCIFEROL. [Concomitant]
     Active Substance: ERGOCALCIFEROL
     Indication: VITAMIN SUPPLEMENTATION
     Route: 048
     Dates: start: 20180209, end: 20180302
  39. ACETAMINOPHEN. [Concomitant]
     Active Substance: ACETAMINOPHEN
     Indication: BONE PAIN
  40. ACETAMINOPHEN. [Concomitant]
     Active Substance: ACETAMINOPHEN
     Indication: NEURALGIA
  41. PANTOPRAZOLE [Concomitant]
     Active Substance: PANTOPRAZOLE
     Indication: NAUSEA
     Route: 042
     Dates: start: 20180212, end: 20180305
  42. BACTRIM [Concomitant]
     Active Substance: SULFAMETHOXAZOLE\TRIMETHOPRIM
     Indication: INFECTION PROPHYLAXIS
     Dosage: MONDAY, WEDNESDAY, AND FRIDAY
     Route: 048
     Dates: start: 20180211, end: 20180305
  43. TROPICAMIDE. [Concomitant]
     Active Substance: TROPICAMIDE
     Indication: INFECTION PROPHYLAXIS
     Route: 047
     Dates: start: 20180222, end: 20180222
  44. SEVELAMER [Concomitant]
     Active Substance: SEVELAMER
     Indication: BLOOD PHOSPHORUS DECREASED
     Route: 048
     Dates: start: 20180218, end: 20180305
  45. GENTEAL OPTHALMIC GEL [Concomitant]
     Indication: INFECTION PROPHYLAXIS
     Route: 047
     Dates: start: 20180209
  46. NORMAL SALINE SOLUTION (0.9% SODIUM CHLORIDE) [Concomitant]
     Route: 042
     Dates: start: 20180224, end: 20180224
  47. VENETOCLAX. [Suspect]
     Active Substance: VENETOCLAX
     Route: 050
     Dates: start: 20180211, end: 20180215
  48. AZACITIDINE. [Suspect]
     Active Substance: AZACITIDINE
     Indication: REFRACTORY CANCER
  49. CELECOXIB. [Concomitant]
     Active Substance: CELECOXIB
     Indication: NEURALGIA
  50. METHADONE [Concomitant]
     Active Substance: METHADONE HYDROCHLORIDE
     Indication: BONE PAIN
     Route: 042
     Dates: start: 20180216, end: 20180216
  51. METHADONE [Concomitant]
     Active Substance: METHADONE HYDROCHLORIDE
     Route: 050
     Dates: start: 20180226, end: 20180301
  52. ACETAMINOPHEN. [Concomitant]
     Active Substance: ACETAMINOPHEN
     Indication: ABDOMINAL PAIN
     Route: 042
     Dates: start: 20180301
  53. DRONABINOL. [Concomitant]
     Active Substance: DRONABINOL
     Indication: NAUSEA
     Route: 048
     Dates: start: 20180210, end: 20180211
  54. CLONAZEPAM. [Concomitant]
     Active Substance: CLONAZEPAM
     Indication: ANXIETY
     Dosage: PRN
     Route: 050
     Dates: start: 20180212, end: 20180222
  55. PREGABALIN. [Concomitant]
     Active Substance: PREGABALIN
     Indication: BONE PAIN
     Route: 048
     Dates: start: 20180209, end: 20180305
  56. VANCOMYCIN [Concomitant]
     Active Substance: VANCOMYCIN
     Route: 042
     Dates: start: 20180224, end: 20180228
  57. AMBISOME [Concomitant]
     Active Substance: AMPHOTERICIN B
     Indication: ANTIFUNGAL PROPHYLAXIS
     Route: 042
     Dates: start: 20180209, end: 20180305
  58. CLONIDINE. [Concomitant]
     Active Substance: CLONIDINE
     Indication: HYPERTENSION
     Route: 048
     Dates: start: 20180208, end: 20180223
  59. FUROSEMIDE. [Concomitant]
     Active Substance: FUROSEMIDE
     Indication: FLUID RETENTION
     Route: 042
     Dates: start: 20180208, end: 20180306
  60. MAGNESIUM SULFATE. [Concomitant]
     Active Substance: MAGNESIUM SULFATE
     Indication: CONSTIPATION
     Route: 048
     Dates: start: 20180209, end: 20180221
  61. MELATONIN [Concomitant]
     Active Substance: MELATONIN
     Indication: SLEEP DISORDER THERAPY
     Dosage: PRN
     Route: 048
     Dates: start: 20180209, end: 20180228
  62. SIMETHICONE (DIMETHICONE) [Concomitant]
     Active Substance: DIMETHICONE
     Indication: ARTHRALGIA
  63. SIMETHICONE (DIMETHICONE) [Concomitant]
     Active Substance: DIMETHICONE
     Indication: NEURALGIA
  64. FENTANYL. [Concomitant]
     Active Substance: FENTANYL
     Indication: ARTHRALGIA
  65. FENTANYL. [Concomitant]
     Active Substance: FENTANYL
     Indication: BONE PAIN
  66. SCOPOLAMINE [Concomitant]
     Active Substance: SCOPOLAMINE
     Indication: NAUSEA
     Route: 062
     Dates: start: 20180210, end: 20180305
  67. VANCOMYCIN [Concomitant]
     Active Substance: VANCOMYCIN
     Route: 042
     Dates: start: 20180222, end: 20180224
  68. VANCOMYCIN [Concomitant]
     Active Substance: VANCOMYCIN
     Route: 042
     Dates: start: 20180228, end: 20180303
  69. OLANZAPINE. [Concomitant]
     Active Substance: OLANZAPINE
     Indication: DELIRIUM
     Route: 048
     Dates: start: 20180223, end: 20180305
  70. VENETOCLAX. [Suspect]
     Active Substance: VENETOCLAX
     Route: 050
     Dates: start: 20180210, end: 20180304
  71. METHADONE [Concomitant]
     Active Substance: METHADONE HYDROCHLORIDE
     Indication: ARTHRALGIA
     Route: 042
     Dates: start: 20180215, end: 20180215
  72. METHADONE [Concomitant]
     Active Substance: METHADONE HYDROCHLORIDE
     Route: 050
     Dates: start: 20180302
  73. FENTANYL. [Concomitant]
     Active Substance: FENTANYL
     Indication: NEURALGIA
  74. D5W NS + POTASSIUM CHLORIDE [Concomitant]
     Indication: FLUID REPLACEMENT
     Route: 042
     Dates: start: 20180213, end: 20180302
  75. RASBURICASE [Concomitant]
     Active Substance: RASBURICASE
     Route: 042
     Dates: start: 20180224, end: 20180224
  76. ONDANSETRON [Concomitant]
     Active Substance: ONDANSETRON
     Indication: NAUSEA
     Route: 042
     Dates: start: 20180208
  77. CELECOXIB. [Concomitant]
     Active Substance: CELECOXIB
     Indication: ARTHRALGIA
  78. RASBURICASE [Concomitant]
     Active Substance: RASBURICASE
     Indication: BLOOD URIC ACID INCREASED
     Route: 042
     Dates: start: 20180207, end: 20180207
  79. RASBURICASE [Concomitant]
     Active Substance: RASBURICASE
     Indication: PROPHYLAXIS
     Route: 042
     Dates: start: 20180217, end: 20180217
  80. PREGABALIN. [Concomitant]
     Active Substance: PREGABALIN
     Indication: ARTHRALGIA
  81. NORMAL SALINE SOLUTION (0.9% SODIUM CHLORIDE) [Concomitant]
     Route: 042
     Dates: start: 20180222, end: 20180222

REACTIONS (3)
  - Hypokalaemia [Recovered/Resolved]
  - Hypocalcaemia [Recovered/Resolved]
  - Respiratory failure [Fatal]

NARRATIVE: CASE EVENT DATE: 20180209
